FAERS Safety Report 16443733 (Version 1)
Quarter: 2019Q2

REPORT INFORMATION
  Report Type: Spontaneous
  Country: US (occurrence: US)
  Receive Date: 20190618
  Receipt Date: 20190618
  Transmission Date: 20190711
  Serious: Yes (Other)
  Sender: FDA-Public Use
  Company Number: PHEH2019US024794

PATIENT
  Age: 53 Year
  Sex: Female
  Weight: 54.4 kg

DRUGS (7)
  1. XADAGO [Concomitant]
     Active Substance: SAFINAMIDE MESYLATE
     Indication: PRODUCT USED FOR UNKNOWN INDICATION
  2. GOCOVRI [Suspect]
     Active Substance: AMANTADINE
     Dosage: 274 MG, QD AT BEDTIME
     Dates: start: 20190414
  3. SYNTHROID [Concomitant]
     Active Substance: LEVOTHYROXINE SODIUM
     Indication: PRODUCT USED FOR UNKNOWN INDICATION
     Route: 065
  4. AMANTADINE HYDROCHLORIDE. [Suspect]
     Active Substance: AMANTADINE HYDROCHLORIDE
     Indication: DYSKINESIA
     Dosage: 100 MG, TID
     Route: 065
     Dates: end: 20190410
  5. AMANTADINE HYDROCHLORIDE. [Suspect]
     Active Substance: AMANTADINE HYDROCHLORIDE
     Dosage: 100 MG, TID
     Route: 065
     Dates: start: 20190411, end: 20190414
  6. SULFAMETHOXAZOLE AND TRIMETHOPRIM [Concomitant]
     Active Substance: SULFAMETHOXAZOLE\TRIMETHOPRIM
     Indication: PRODUCT USED FOR UNKNOWN INDICATION
  7. GOCOVRI [Suspect]
     Active Substance: AMANTADINE
     Indication: DYSKINESIA
     Dosage: 137 MG, QD, AT BEDTIME
     Route: 048
     Dates: start: 20190411, end: 20190413

REACTIONS (9)
  - Urinary retention [Unknown]
  - Urethritis noninfective [Unknown]
  - Fatigue [Not Recovered/Not Resolved]
  - Dyspareunia [Unknown]
  - Dyskinesia [Unknown]
  - Product dose omission [Unknown]
  - Livedo reticularis [Recovering/Resolving]
  - Hypersensitivity [Not Recovered/Not Resolved]
  - Cystitis [Unknown]

NARRATIVE: CASE EVENT DATE: 201904
